FAERS Safety Report 9189716 (Version 1)
Quarter: 2013Q1

REPORT INFORMATION
  Report Type: Spontaneous
  Country: US (occurrence: None)
  Receive Date: 20130322
  Receipt Date: 20130322
  Transmission Date: 20140127
  Serious: Yes (Other)
  Sender: FDA-Public Use
  Company Number: EUS-2013-00090

PATIENT
  Age: 66 Year
  Sex: Male
  Weight: 63.6 kg

DRUGS (1)
  1. QUADRAMET [Suspect]
     Indication: PROSTATE CANCER
     Dosage: 134 MCI,  UNKNOWN
     Dates: start: 20121219, end: 20121219

REACTIONS (2)
  - Platelet count decreased [None]
  - Neutrophil count decreased [None]
